FAERS Safety Report 4857673-9 (Version None)
Quarter: 2005Q4

REPORT INFORMATION
  Report Type: 
  Country: None (occurrence: None)
  Receive Date: 20051215
  Receipt Date: 20051129
  Transmission Date: 20060501
  Serious: Yes (Hospitalization)
  Sender: FDA-Public Use
  Company Number: BEWYE125909NOV05

PATIENT
  Age: 59 Year
  Sex: Female

DRUGS (12)
  1. RAPAMUNE [Suspect]
     Indication: PROPHYLAXIS AGAINST TRANSPLANT REJECTION
     Dosage: SEE IMAGE
     Route: 048
     Dates: start: 20050816, end: 20051115
  2. RAPAMUNE [Suspect]
     Indication: PROPHYLAXIS AGAINST TRANSPLANT REJECTION
     Dosage: SEE IMAGE
     Route: 048
     Dates: start: 20051115
  3. ZENAPAX [Suspect]
     Indication: PROPHYLAXIS AGAINST TRANSPLANT REJECTION
     Dosage: 60 MG INTRAVENOUS
     Route: 042
     Dates: start: 20050815, end: 20051011
  4. ZOCOR [Concomitant]
  5. PANTOPRAZOLE SODIUM [Concomitant]
  6. COTRIM E (SULFAMETHOXAZOLE/TRIMETHOPRIM) [Concomitant]
  7. SODIUM BICARBONATE IN PLASTIC CONTAINER [Concomitant]
  8. CARVEDILOL [Concomitant]
  9. MOXONIDINE (MOXONIDINE) [Concomitant]
  10. PREDNISOLONE [Concomitant]
  11. CALCIUM CARBONATE (CALCIUM CARBONATE) [Concomitant]
  12. CELLCEPT [Concomitant]

REACTIONS (12)
  - ANURIA [None]
  - ARTERIOVENOUS FISTULA SITE COMPLICATION [None]
  - CATHETER RELATED COMPLICATION [None]
  - COMPLICATIONS OF TRANSPLANTED KIDNEY [None]
  - CYTOMEGALOVIRUS INFECTION [None]
  - DEEP VEIN THROMBOSIS [None]
  - HAEMODIALYSIS [None]
  - HYPOKALAEMIA [None]
  - HYPOXIA [None]
  - KIDNEY FIBROSIS [None]
  - RENAL TUBULAR NECROSIS [None]
  - RESPIRATORY ALKALOSIS [None]
